FAERS Safety Report 5850454-9 (Version None)
Quarter: 2008Q3

REPORT INFORMATION
  Report Type: 
  Country: None (occurrence: None)
  Receive Date: 20080819
  Receipt Date: 20080624
  Transmission Date: 20090109
  Serious: Yes (Other)
  Sender: FDA-Public Use
  Company Number: US-PFIZER INC-2008053647

PATIENT
  Sex: Female

DRUGS (3)
  1. LYRICA [Suspect]
     Indication: FIBROMYALGIA
  2. NEURONTIN [Suspect]
  3. DURAGESIC-100 [Concomitant]

REACTIONS (6)
  - FIBROMYALGIA [None]
  - HERPES ZOSTER [None]
  - NEUROPATHY PERIPHERAL [None]
  - SOMNOLENCE [None]
  - URINARY TRACT DISORDER [None]
  - WEIGHT INCREASED [None]
